FAERS Safety Report 7775122-8 (Version None)
Quarter: 2011Q3

REPORT INFORMATION
  Report Type: 
  Country: None (occurrence: None)
  Receive Date: 20110923
  Receipt Date: 20110921
  Transmission Date: 20111222
  Serious: Yes (Hospitalization)
  Sender: FDA-Public Use
  Company Number: FR-JNJFOC-20110104801

PATIENT
  Sex: Male
  Weight: 33.5 kg

DRUGS (2)
  1. REMICADE [Suspect]
     Indication: CROHN'S DISEASE
     Route: 042
     Dates: start: 20090117, end: 20091203
  2. HUMIRA [Concomitant]
     Dates: start: 20091216

REACTIONS (1)
  - GASTROENTERITIS [None]
